FAERS Safety Report 15474810 (Version 1)
Quarter: 2018Q4

REPORT INFORMATION
  Report Type: Other
  Country: PT (occurrence: PT)
  Receive Date: 20181008
  Receipt Date: 20181008
  Transmission Date: 20190205
  Serious: Yes (Other)
  Sender: FDA-Public Use
  Company Number: PT-PROVELL PHARMACEUTICALS-2055794

PATIENT
  Age: 65 Year
  Sex: Female

DRUGS (6)
  1. EUTHYROX [Suspect]
     Active Substance: LEVOTHYROXINE SODIUM
     Indication: PRODUCT USED FOR UNKNOWN INDICATION
     Route: 065
  2. WARFARIN [Suspect]
     Active Substance: WARFARIN
  3. EUTHYROX [Suspect]
     Active Substance: LEVOTHYROXINE SODIUM
  4. SPIRONOLACTONE. [Suspect]
     Active Substance: SPIRONOLACTONE
  5. EUTHYROX [Suspect]
     Active Substance: LEVOTHYROXINE SODIUM
  6. FUROSEMIDE. [Suspect]
     Active Substance: FUROSEMIDE
     Route: 065

REACTIONS (7)
  - Strabismus [Unknown]
  - Exophthalmos [Unknown]
  - Conjunctival hyperaemia [Unknown]
  - Xerophthalmia [Unknown]
  - Eye pain [Unknown]
  - Endocrine ophthalmopathy [Unknown]
  - Diplopia [Unknown]
